FAERS Safety Report 4458969-5 (Version None)
Quarter: 2004Q3

REPORT INFORMATION
  Report Type: 
  Country: None (occurrence: None)
  Receive Date: 20040920
  Receipt Date: 20040920
  Transmission Date: 20050211
  Serious: No
  Sender: FDA-Public Use
  Company Number: None

PATIENT
  Age: 75 Year
  Sex: Male
  Weight: 77 kg

DRUGS (2)
  1. RITUXAN [Suspect]
     Indication: CHRONIC LYMPHOCYTIC LEUKAEMIA
     Dosage: 710 MG IV MONTHLY
     Route: 042
     Dates: start: 20040223
  2. RITUXAN [Suspect]
     Indication: LYMPHOMA
     Dosage: 710 MG IV MONTHLY
     Route: 042
     Dates: start: 20040223

REACTIONS (1)
  - NEUTROPENIA [None]
